FAERS Safety Report 15929996 (Version 1)
Quarter: 2019Q1

REPORT INFORMATION
  Report Type: Spontaneous
  Country: US (occurrence: US)
  Receive Date: 20190206
  Receipt Date: 20190206
  Transmission Date: 20190417
  Serious: No
  Sender: FDA-Public Use
  Company Number: US-ASTRAZENECA-2019SE05952

PATIENT
  Age: 13244 Day
  Sex: Female
  Weight: 130.6 kg

DRUGS (3)
  1. NORGESTIMATE [Concomitant]
     Active Substance: NORGESTIMATE
     Indication: CONTRACEPTION
     Dosage: NORGESTIMATE 0.25 MG AND ETHINYL ESTRADIOL 0.035 MG FOR 3 WEEKS, DAILY
     Route: 048
     Dates: start: 2000
  2. VENTOLIN [Concomitant]
     Active Substance: ALBUTEROL SULFATE
     Indication: ADJUVANT THERAPY
     Dosage: 90.0UG AS REQUIRED
     Route: 055
     Dates: start: 2016
  3. SYMBICORT [Suspect]
     Active Substance: BUDESONIDE\FORMOTEROL FUMARATE DIHYDRATE
     Indication: ASTHMA
     Dosage: 80/4.5 MCG, TWO PUFFS, TWICE DAILY
     Route: 055
     Dates: start: 2018, end: 20181227

REACTIONS (7)
  - Product dose omission [Unknown]
  - Dizziness [Recovered/Resolved]
  - Feeling abnormal [Recovered/Resolved]
  - Dyspnoea [Recovered/Resolved]
  - Heart rate increased [Recovered/Resolved]
  - Intentional product misuse [Unknown]
  - Paraesthesia [Recovered/Resolved]
